FAERS Safety Report 19801940 (Version 5)
Quarter: 2022Q2

REPORT INFORMATION
  Report Type: Other
  Country: CA (occurrence: CA)
  Receive Date: 20210908
  Receipt Date: 20220401
  Transmission Date: 20220721
  Serious: Yes (Other)
  Sender: FDA-Public Use
  Company Number: CA-CELLTRION INC.-2021CA011962

PATIENT

DRUGS (8)
  1. RITUXIMAB [Suspect]
     Active Substance: RITUXIMAB
     Indication: Microscopic polyangiitis
     Dosage: UNK
     Route: 065
  2. RITUXIMAB [Suspect]
     Active Substance: RITUXIMAB
     Indication: Granulomatosis with polyangiitis
     Dosage: 500 MG
     Route: 042
  3. CALCIUM [Concomitant]
     Active Substance: CALCIUM
     Dosage: 1 DOSAGE FORMS
     Route: 065
  4. CYCLOBENZAPRINE [Concomitant]
     Active Substance: CYCLOBENZAPRINE
     Dosage: 1 DOSAGE FORM, AS REQUIRED
     Route: 065
  5. ERGOCALCIFEROL [Concomitant]
     Active Substance: ERGOCALCIFEROL
     Dosage: 1 DOSAGE FORM
     Route: 065
  6. MORPHINE SULFATE [Concomitant]
     Active Substance: MORPHINE SULFATE
     Dosage: 1 DOSAGE FORM
     Route: 065
  7. PROLIA [Concomitant]
     Active Substance: DENOSUMAB
     Dosage: 1 DOSAGE FORM
     Route: 065
  8. ROSUVASTATIN CALCIUM [Concomitant]
     Active Substance: ROSUVASTATIN CALCIUM
     Dosage: 1 DOSAGE FORM
     Route: 065

REACTIONS (7)
  - Condition aggravated [Recovered/Resolved]
  - Nasal disorder [Recovered/Resolved]
  - Nephrolithiasis [Recovered/Resolved]
  - Anaphylactic reaction [Recovered/Resolved]
  - Urinary tract infection [Recovered/Resolved]
  - Post procedural infection [Recovered/Resolved]
  - Off label use [Recovered/Resolved]
